FAERS Safety Report 6143042-0 (Version None)
Quarter: 2009Q2

REPORT INFORMATION
  Report Type: 
  Country: None (occurrence: None)
  Receive Date: 20090401
  Receipt Date: 20090324
  Transmission Date: 20091009
  Serious: Yes (Hospitalization)
  Sender: FDA-Public Use
  Company Number: CHPA2009US07804

PATIENT
  Age: 4 Year
  Sex: Female
  Weight: 20.4 kg

DRUGS (1)
  1. TRIAMINIC NIGHT TIME COLD + COUGH (NCH) (DIPHENHYDRAMINE, PHENYLEPHRIN [Suspect]
     Indication: NASOPHARYNGITIS
     Dosage: 2 DF, QD, ORAL
     Route: 048
     Dates: start: 20090323

REACTIONS (3)
  - BRONCHITIS [None]
  - INCORRECT DOSE ADMINISTERED [None]
  - OVERDOSE [None]
